FAERS Safety Report 5331900-6 (Version None)
Quarter: 2007Q2

REPORT INFORMATION
  Report Type: 
  Country: None (occurrence: None)
  Receive Date: 20070523
  Receipt Date: 20070516
  Transmission Date: 20071010
  Serious: Yes (Hospitalization)
  Sender: FDA-Public Use
  Company Number: JP-BAYER-200710305BYL

PATIENT
  Age: 75 Year
  Sex: Male
  Weight: 67 kg

DRUGS (13)
  1. ASPIRIN [Suspect]
     Indication: MYOCARDIAL INFARCTION
     Dosage: TOTAL DAILY DOSE: 100 MG  UNIT DOSE: 100 MG
     Route: 048
     Dates: start: 20060402, end: 20070416
  2. TAKEPRON [Suspect]
     Route: 048
     Dates: start: 20060410, end: 20070416
  3. SAIKOKEISHITO [Concomitant]
     Indication: UPPER RESPIRATORY TRACT INFLAMMATION
     Route: 048
     Dates: start: 20070322, end: 20070323
  4. KETEK [Concomitant]
     Route: 048
     Dates: start: 20070323, end: 20070326
  5. ROCEPHIN [Concomitant]
     Route: 041
     Dates: start: 20070402, end: 20070405
  6. FLOMOX [Concomitant]
     Route: 048
     Dates: start: 20070406, end: 20070408
  7. LEVOFLOXACIN [Concomitant]
     Route: 048
     Dates: start: 20070409, end: 20070409
  8. MUCOSTA [Concomitant]
     Route: 048
     Dates: start: 20060409, end: 20070416
  9. MAINTATE [Concomitant]
     Route: 048
     Dates: start: 20060509, end: 20070416
  10. DIOVAN [Concomitant]
     Route: 048
     Dates: start: 20060509, end: 20070413
  11. BASEN [Concomitant]
     Route: 048
     Dates: start: 20061206, end: 20070416
  12. MAGNESIUM OXIDE [Concomitant]
     Route: 048
     Dates: start: 20061003, end: 20070416
  13. SIGMART [Concomitant]
     Route: 048
     Dates: start: 20060410

REACTIONS (3)
  - NEPHRITIS INTERSTITIAL [None]
  - PYREXIA [None]
  - RENAL IMPAIRMENT [None]
